FAERS Safety Report 12932699 (Version 1)
Quarter: 2016Q4

REPORT INFORMATION
  Report Type: Spontaneous
  Country: CA (occurrence: CA)
  Receive Date: 20161111
  Receipt Date: 20161111
  Transmission Date: 20170207
  Serious: Yes (Other)
  Sender: FDA-Public Use
  Company Number: CA-TEVA-710050ACC

PATIENT

DRUGS (1)
  1. ACT-FLUVOXAMINE [Suspect]
     Active Substance: FLUVOXAMINE
     Indication: PRODUCT USED FOR UNKNOWN INDICATION
     Dosage: 100 MILLIGRAM DAILY;

REACTIONS (3)
  - Coeliac disease [Unknown]
  - Gastrointestinal disorder [Unknown]
  - Product formulation issue [None]
